FAERS Safety Report 6047037-7 (Version None)
Quarter: 2009Q1

REPORT INFORMATION
  Report Type: 
  Country: None (occurrence: None)
  Receive Date: 20090122
  Receipt Date: 20090112
  Transmission Date: 20090719
  Serious: Yes (Life-Threatening)
  Sender: FDA-Public Use
  Company Number: JP-BAXTER-2009BH000673

PATIENT
  Age: 72 Year
  Sex: Female
  Weight: 57 kg

DRUGS (13)
  1. SEVOFLURANE [Suspect]
     Indication: ANAESTHESIA
     Route: 055
     Dates: start: 20060607, end: 20060607
  2. AMLODIPINE [Concomitant]
     Indication: HYPERTENSION
     Route: 065
  3. PREDNISOLONE [Concomitant]
     Indication: ASTHMA
     Route: 065
  4. PROCATEROL HCL [Concomitant]
     Indication: ASTHMA
     Route: 065
  5. MONTELUKAST SODIUM [Concomitant]
     Indication: ASTHMA
     Route: 065
  6. THEOPHYLLINE [Concomitant]
     Indication: ASTHMA
     Route: 065
  7. SALMETEROL XINAFOATE [Concomitant]
     Indication: ASTHMA
     Route: 065
  8. FLUTICASONE PROPIONATE [Concomitant]
     Indication: ASTHMA
     Route: 065
  9. AMLODIPINE BESILATE [Concomitant]
     Indication: HYPERTENSION
     Route: 065
  10. LIDOCAINE [Concomitant]
     Indication: ANAESTHESIA
     Route: 042
     Dates: start: 20060607, end: 20060607
  11. FENTANYL [Concomitant]
     Indication: ANAESTHESIA
     Route: 042
     Dates: start: 20060607, end: 20060607
  12. VECURONIUM BROMIDE [Concomitant]
     Indication: ANAESTHESIA
     Route: 042
     Dates: start: 20060607, end: 20060607
  13. PROPOFOL [Concomitant]
     Indication: ANAESTHESIA
     Route: 042
     Dates: start: 20060607, end: 20060607

REACTIONS (2)
  - ANAPHYLACTIC SHOCK [None]
  - ARTERIOSPASM CORONARY [None]
